FAERS Safety Report 9012841 (Version 1)
Quarter: 2013Q1

REPORT INFORMATION
  Report Type: Spontaneous
  Country: US (occurrence: US)
  Receive Date: 20130114
  Receipt Date: 20130114
  Transmission Date: 20140127
  Serious: No
  Sender: FDA-Public Use
  Company Number: US-009507513-1301USA003343

PATIENT
  Age: 55 Year
  Sex: Male

DRUGS (2)
  1. PEGINTRON [Suspect]
     Indication: CHRONIC HEPATITIS C
     Dosage: UNK
     Dates: start: 20130104
  2. RIBAVIRIN (WARRICK) [Suspect]
     Indication: CHRONIC HEPATITIS C
     Dosage: UNK
     Route: 048
     Dates: start: 20130104

REACTIONS (5)
  - Headache [Unknown]
  - Chills [Unknown]
  - Insomnia [Unknown]
  - Pyrexia [Unknown]
  - Nausea [Unknown]
